FAERS Safety Report 17547211 (Version 1)
Quarter: 2020Q1

REPORT INFORMATION
  Report Type: Spontaneous
  Country: US (occurrence: US)
  Receive Date: 20200316
  Receipt Date: 20200316
  Transmission Date: 20200409
  Serious: No
  Sender: FDA-Public Use
  Company Number: US-ACTELION-A-US2020-200240

PATIENT
  Sex: Female
  Weight: 47.17 kg

DRUGS (4)
  1. UPTRAVI [Suspect]
     Active Substance: SELEXIPAG
     Indication: PULMONARY ARTERIAL HYPERTENSION
     Dosage: 200 MCG, BID
     Route: 048
  2. UPTRAVI [Suspect]
     Active Substance: SELEXIPAG
     Dosage: 400 MCG, BID
     Route: 048
  3. WARFARIN [Concomitant]
     Active Substance: WARFARIN
  4. SILDENAFIL. [Concomitant]
     Active Substance: SILDENAFIL

REACTIONS (7)
  - Dry skin [Unknown]
  - Atrial fibrillation [Unknown]
  - Dyspnoea [Unknown]
  - Fluid retention [Unknown]
  - Pruritus [Unknown]
  - Oedema peripheral [Unknown]
  - Skin exfoliation [Unknown]
